FAERS Safety Report 8609487-1 (Version None)
Quarter: 2012Q3

REPORT INFORMATION
  Report Type: 
  Country: None (occurrence: None)
  Receive Date: 20120821
  Receipt Date: 20120813
  Transmission Date: 20120928
  Serious: Yes (Death, Hospitalization)
  Sender: FDA-Public Use
  Company Number: GB-BAXTER-2012BAX013505

PATIENT
  Sex: Male
  Weight: 84 kg

DRUGS (3)
  1. EXTRANEAL [Suspect]
     Route: 033
     Dates: start: 20081202, end: 20120630
  2. DIANEAL [Suspect]
     Dosage: 2X5L BAGS
     Route: 033
     Dates: start: 20081202, end: 20120630
  3. EXTRANEAL [Suspect]
     Dates: start: 20081202, end: 20120630

REACTIONS (4)
  - CHEST PAIN [None]
  - DEATH [None]
  - DYSPNOEA [None]
  - CELLULITIS [None]
